FAERS Safety Report 6306883-2 (Version None)
Quarter: 2009Q3

REPORT INFORMATION
  Report Type: 
  Country: None (occurrence: None)
  Receive Date: 20090812
  Receipt Date: 20090102
  Transmission Date: 20100115
  Serious: Yes (Other)
  Sender: FDA-Public Use
  Company Number: US-PFIZER INC-2007039077

PATIENT
  Sex: Female
  Weight: 44.91 kg

DRUGS (2)
  1. LIPITOR [Suspect]
     Dosage: 20 MG, 1X/DAY
  2. ZITHROMAX [Suspect]

REACTIONS (2)
  - HEART VALVE STENOSIS [None]
  - MUSCLE SPASMS [None]
